FAERS Safety Report 21508710 (Version 5)
Quarter: 2024Q3

REPORT INFORMATION
  Report Type: Report from Study
  Country: IN (occurrence: IN)
  Receive Date: 20221026
  Receipt Date: 20240722
  Transmission Date: 20241017
  Serious: Yes (Hospitalization, Other)
  Sender: TAKEDA
  Company Number: IN-TAKEDA-2022TUS077106

PATIENT
  Age: 33 Year
  Sex: Male

DRUGS (1)
  1. VEDOLIZUMAB [Suspect]
     Active Substance: VEDOLIZUMAB
     Indication: Crohn^s disease
     Dosage: 300 MILLIGRAM
     Route: 042

REACTIONS (10)
  - Abdominal pain upper [Recovered/Resolved]
  - Suicidal ideation [Unknown]
  - Vomiting [Recovered/Resolved]
  - Product storage error [Unknown]
  - Emotional distress [Unknown]
  - Treatment noncompliance [Unknown]
  - Hyperchlorhydria [Unknown]
  - Product availability issue [Unknown]
  - Flatulence [Unknown]
  - Nasopharyngitis [Unknown]

NARRATIVE: CASE EVENT DATE: 20240712
